FAERS Safety Report 6846822-9 (Version None)
Quarter: 2010Q3

REPORT INFORMATION
  Report Type: 
  Country: None (occurrence: None)
  Receive Date: 20100715
  Receipt Date: 20070921
  Transmission Date: 20110219
  Serious: No
  Sender: FDA-Public Use
  Company Number: US-PFIZER INC-2007080556

PATIENT
  Sex: Male
  Weight: 79.5 kg

DRUGS (3)
  1. CHANTIX [Suspect]
     Indication: SMOKING CESSATION THERAPY
     Dates: start: 20070801, end: 20070101
  2. ALL OTHER THERAPEUTIC PRODUCTS [Suspect]
     Indication: ATRIAL FIBRILLATION
     Dosage: BID EVERY DAY
  3. IBUPROFEN [Concomitant]

REACTIONS (1)
  - INFLUENZA LIKE ILLNESS [None]
